FAERS Safety Report 9130839 (Version 3)
Quarter: 2013Q1

REPORT INFORMATION
  Report Type: Spontaneous
  Country: US (occurrence: US)
  Receive Date: 20130301
  Receipt Date: 20130322
  Transmission Date: 20140127
  Serious: Yes (Other)
  Sender: FDA-Public Use
  Company Number: US-PFIZER INC-2013072182

PATIENT
  Age: 56 Year
  Sex: Female
  Weight: 77 kg

DRUGS (7)
  1. NEURONTIN [Suspect]
     Indication: NEURALGIA
     Dosage: 100 MG, 3X/DAY
     Dates: start: 2008, end: 2012
  2. IRON [Concomitant]
     Indication: BLOOD IRON DECREASED
     Dosage: 325 MG, 2X/DAY
     Dates: start: 201208
  3. NORCO [Concomitant]
     Indication: PAIN
     Dosage: [HYDROCODONE BITARTRATE 10MG/ ACETAMINOPHEN 325MG], 3X/DAY
     Dates: start: 2008
  4. FLEXERIL [Concomitant]
     Indication: MUSCLE SPASMS
     Dosage: 10MG DAILY
  5. COUMADIN [Concomitant]
     Indication: PULMONARY THROMBOSIS
     Dosage: 7.5MG DAILY
     Dates: start: 201208
  6. SIMVASTATIN [Concomitant]
     Indication: BLOOD CHOLESTEROL ABNORMAL
     Dosage: 10MG DAILY
     Dates: start: 201208
  7. VITAMIN D CALCIUM SUPPLEMENT [Concomitant]
     Dosage: 1500 MG, 2X/DAY

REACTIONS (3)
  - Lung disorder [Unknown]
  - Spinal disorder [Unknown]
  - Drug ineffective [Unknown]
